FAERS Safety Report 5130734-5 (Version None)
Quarter: 2006Q4

REPORT INFORMATION
  Report Type: 
  Country: None (occurrence: None)
  Receive Date: 20061018
  Receipt Date: 20061018
  Transmission Date: 20070319
  Serious: Yes (Life-Threatening, Hospitalization)
  Sender: FDA-Public Use
  Company Number: None

PATIENT
  Age: 73 Year
  Sex: Female
  Weight: 53 kg

DRUGS (16)
  1. ANCEF [Suspect]
     Indication: PROPHYLAXIS
     Dosage: 2G IV X1
     Route: 042
     Dates: start: 20060810
  2. ANCEF [Suspect]
     Indication: SURGERY
     Dosage: 2G IV X1
     Route: 042
     Dates: start: 20060810
  3. ETOMIDATE/MIVACURIUM/ FENTANYL [Suspect]
     Indication: SEDATION
     Dosage: 100 MG.10 MG/ 100 MCG
     Dates: start: 20060810
  4. SENSIPAR [Concomitant]
  5. HEPARIN [Concomitant]
  6. CLARITIN [Concomitant]
  7. NEPHROVITE [Concomitant]
  8. SORBITOL [Concomitant]
  9. TYLENOL [Concomitant]
  10. DULCOLAX [Concomitant]
  11. VICODIN [Concomitant]
  12. MOM [Concomitant]
  13. MECLIZINE [Concomitant]
  14. PERCOCET [Concomitant]
  15. ZOFRAN [Concomitant]
  16. MORPHINE [Concomitant]

REACTIONS (4)
  - ANAESTHETIC COMPLICATION [None]
  - ANAPHYLACTIC REACTION [None]
  - PROCEDURAL COMPLICATION [None]
  - PROCEDURAL HYPOTENSION [None]
